FAERS Safety Report 16127196 (Version 1)
Quarter: 2019Q1

REPORT INFORMATION
  Report Type: Spontaneous
  Country: DE (occurrence: DE)
  Receive Date: 20190328
  Receipt Date: 20190328
  Transmission Date: 20190418
  Serious: Yes (Other)
  Sender: FDA-Public Use
  Company Number: DE-BIOGEN-2019BI00715063

PATIENT
  Age: 52 Year
  Sex: Female

DRUGS (5)
  1. TECFIDERA [Suspect]
     Active Substance: DIMETHYL FUMARATE
     Indication: MULTIPLE SCLEROSIS
     Route: 048
     Dates: start: 20190201
  2. TECFIDERA [Suspect]
     Active Substance: DIMETHYL FUMARATE
     Route: 048
  3. OXYCODON [Suspect]
     Active Substance: OXYCODONE
     Indication: JOINT HYPEREXTENSION
     Route: 065
  4. TECFIDERA [Suspect]
     Active Substance: DIMETHYL FUMARATE
     Dosage: MAINTENANCE DOSE
     Route: 048
  5. TECFIDERA [Suspect]
     Active Substance: DIMETHYL FUMARATE
     Dosage: UNIT DOSE: 120 MG PLUS 240MG
     Route: 048

REACTIONS (5)
  - Ileus [Not Recovered/Not Resolved]
  - Off label use [Recovered/Resolved]
  - Hallucination [Recovered/Resolved]
  - Joint hyperextension [Not Recovered/Not Resolved]
  - Articular calcification [Not Recovered/Not Resolved]

NARRATIVE: CASE EVENT DATE: 20190201
